FAERS Safety Report 7960427-8 (Version None)
Quarter: 2011Q4

REPORT INFORMATION
  Report Type: 
  Country: None (occurrence: None)
  Receive Date: 20111206
  Receipt Date: 20111129
  Transmission Date: 20120403
  Serious: Yes (Other)
  Sender: FDA-Public Use
  Company Number: FI-NAPPMUNDI-GBR-2011-0009145

PATIENT
  Sex: Male

DRUGS (1)
  1. NORSPAN [Suspect]
     Indication: PAIN
     Route: 062

REACTIONS (1)
  - DELIRIUM [None]
